FAERS Safety Report 8993392 (Version 1)
Quarter: 2013Q1

REPORT INFORMATION
  Report Type: Spontaneous
  Country: US (occurrence: US)
  Receive Date: 20130102
  Receipt Date: 20130102
  Transmission Date: 20140127
  Serious: Yes (Other)
  Sender: FDA-Public Use
  Company Number: CHPA2012US025655

PATIENT
  Age: 59 Year
  Sex: Female

DRUGS (4)
  1. BENEFIBER STICK PACKS [Suspect]
     Indication: BOWEL MOVEMENT IRREGULARITY
     Dosage: 1 PACKET, QD
     Route: 048
     Dates: start: 2012, end: 201211
  2. BENEFIBER STICK PACKS [Suspect]
     Dosage: 1 PACKET, QD
     Route: 048
     Dates: start: 2012, end: 20121214
  3. BENEFIBER SUGAR FREE [Suspect]
     Indication: BOWEL MOVEMENT IRREGULARITY
     Dosage: 3 DF, UNK
     Route: 048
  4. DRUG THERAPY NOS [Concomitant]
     Indication: BACK INJURY
     Dosage: UNK, UNK

REACTIONS (3)
  - Nausea [Recovered/Resolved]
  - Vomiting [Recovered/Resolved]
  - Off label use [Unknown]
